FAERS Safety Report 4912860-6 (Version None)
Quarter: 2006Q1

REPORT INFORMATION
  Report Type: 
  Country: None (occurrence: None)
  Receive Date: 20060215
  Receipt Date: 20060206
  Transmission Date: 20060701
  Serious: Yes (Death)
  Sender: FDA-Public Use
  Company Number: NSADSS2001027694

PATIENT
  Sex: Female
  Weight: 98.43 kg

DRUGS (33)
  1. REMICADE [Suspect]
     Route: 041
     Dates: start: 20010828
  2. REMICADE [Suspect]
     Indication: RHEUMATOID ARTHRITIS
     Route: 041
     Dates: start: 20010828
  3. ALTACE [Concomitant]
  4. LANOXIN [Concomitant]
  5. CARDIZEM [Concomitant]
  6. PREVACID [Concomitant]
  7. KLOTRIX [Concomitant]
  8. CALCIUM WITH VITAMIN D [Concomitant]
  9. CALCIUM WITH VITAMIN D [Concomitant]
  10. CALCIUM WITH VITAMIN D [Concomitant]
  11. B-12 [Concomitant]
  12. FOSAMAX [Concomitant]
  13. PLETAL [Concomitant]
  14. SLOW FE [Concomitant]
  15. PREDNISOLONE [Concomitant]
  16. DEMEROL [Concomitant]
  17. TOPAMAX [Concomitant]
  18. B 1 [Concomitant]
  19. B 1 [Concomitant]
  20. B 1 [Concomitant]
  21. B 1 [Concomitant]
  22. FOLIC ACID [Concomitant]
  23. ZANAFLEX [Concomitant]
  24. NEURONTIN [Concomitant]
  25. ECOTRIN [Concomitant]
  26. BUMEX [Concomitant]
  27. NITROGLYCERIN [Concomitant]
  28. DICYCLOMINE [Concomitant]
  29. SULCALFATE [Concomitant]
  30. PREMARIN [Concomitant]
  31. PREMARIN [Concomitant]
  32. AVANDIA [Concomitant]
  33. INSULIN [Concomitant]

REACTIONS (1)
  - CARDIAC ARREST [None]
